FAERS Safety Report 5696317-3 (Version None)
Quarter: 2008Q2

REPORT INFORMATION
  Report Type: 
  Country: None (occurrence: None)
  Receive Date: 20080407
  Receipt Date: 20080326
  Transmission Date: 20081010
  Serious: Yes (Hospitalization)
  Sender: FDA-Public Use
  Company Number: AU-PFIZER INC-2008025555

PATIENT
  Sex: Male
  Weight: 109 kg

DRUGS (8)
  1. SU-011,248 [Suspect]
     Indication: RENAL CELL CARCINOMA
     Route: 048
  2. ATENOLOL [Concomitant]
     Route: 048
  3. ALLOPURINOL [Concomitant]
     Route: 048
  4. KARVEA [Concomitant]
     Route: 048
  5. TRITACE [Concomitant]
     Route: 048
  6. METFORMIN HCL [Concomitant]
     Route: 048
  7. PANADOL [Concomitant]
     Route: 048
  8. ACETAMINOPHEN W/ CODEINE [Concomitant]
     Route: 048

REACTIONS (2)
  - JAUNDICE [None]
  - SKIN ULCER [None]
